FAERS Safety Report 5935563-8 (Version None)
Quarter: 2008Q4

REPORT INFORMATION
  Report Type: 
  Country: None (occurrence: None)
  Receive Date: 20081030
  Receipt Date: 20081024
  Transmission Date: 20090506
  Serious: Yes (Death, Hospitalization)
  Sender: FDA-Public Use
  Company Number: A0743072A

PATIENT
  Age: 57 Year
  Sex: Male
  Weight: 65.9 kg

DRUGS (8)
  1. ZOFRAN [Suspect]
     Dosage: 32MG WEEKLY
     Route: 042
     Dates: start: 20070801
  2. DECADRON [Concomitant]
  3. TAGAMET [Concomitant]
  4. BENADRYL [Concomitant]
  5. CARBOPLATIN [Concomitant]
  6. TAXOL [Concomitant]
  7. ALIMTA [Concomitant]
  8. CETUXIMAB [Concomitant]

REACTIONS (2)
  - DYSPNOEA [None]
  - LUNG NEOPLASM MALIGNANT [None]
